FAERS Safety Report 4542442-X (Version None)
Quarter: 2004Q4

REPORT INFORMATION
  Report Type: 
  Country: None (occurrence: None)
  Receive Date: 20041229
  Receipt Date: 20041220
  Transmission Date: 20050328
  Serious: Yes (Death, Life-Threatening)
  Sender: FDA-Public Use
  Company Number: 200319858BWH

PATIENT
  Age: 44 Year
  Sex: Female

DRUGS (1)
  1. AVELOX [Suspect]
     Indication: PNEUMONIA
     Dosage: 400 MG, QD, INTRAVENOUS
     Route: 042
     Dates: start: 20030113, end: 20030115

REACTIONS (2)
  - CARDIO-RESPIRATORY ARREST [None]
  - TORSADE DE POINTES [None]
